FAERS Safety Report 9018775 (Version 2)
Quarter: 2013Q1

REPORT INFORMATION
  Report Type: Report from Study
  Country: US (occurrence: US)
  Receive Date: 20130118
  Receipt Date: 20130129
  Transmission Date: 20140127
  Serious: Yes (Hospitalization)
  Sender: FDA-Public Use
  Company Number: US-ACTELION-A-NJ2013-77691

PATIENT
  Age: 71 Year
  Sex: Male

DRUGS (2)
  1. VELETRI [Suspect]
     Indication: PULMONARY ARTERIAL HYPERTENSION
     Dosage: 14 NG/KG, PER MIN
     Route: 041
     Dates: start: 20130103
  2. COUMADIN [Concomitant]

REACTIONS (4)
  - Atrial fibrillation [Unknown]
  - Vomiting [Unknown]
  - Pain in jaw [Unknown]
  - Flushing [Unknown]
